FAERS Safety Report 13830242 (Version 2)
Quarter: 2017Q3

REPORT INFORMATION
  Report Type: Spontaneous
  Country: PK (occurrence: PK)
  Receive Date: 20170803
  Receipt Date: 20170807
  Transmission Date: 20171127
  Serious: Yes (Death, Hospitalization)
  Sender: FDA-Public Use
  Company Number: PK-JNJFOC-20170418350

PATIENT
  Age: 0 Day
  Sex: Male
  Weight: 2.1 kg

DRUGS (11)
  1. AMIKACIN [Concomitant]
     Active Substance: AMIKACIN
     Indication: TUBERCULOSIS
     Dosage: MOTHER?S DOSING
     Route: 063
     Dates: start: 20161019, end: 20170317
  2. IBERET FOLIC [Concomitant]
     Indication: MINERAL SUPPLEMENTATION
     Route: 063
     Dates: start: 20161019
  3. ETOPOSIDE. [Concomitant]
     Active Substance: ETOPOSIDE
     Indication: TUBERCULOSIS
     Dosage: MOTHER?S DOSING
     Route: 063
     Dates: start: 20161019
  4. CYCLOSERINE. [Concomitant]
     Active Substance: CYCLOSERINE
     Indication: TUBERCULOSIS
     Dosage: MOTHER?S DOSING
     Route: 063
     Dates: start: 20161019
  5. MOXIFLOXACIN. [Concomitant]
     Active Substance: MOXIFLOXACIN
     Indication: TUBERCULOSIS
     Dosage: MOTHER?S DOSING
     Route: 063
     Dates: start: 20161019
  6. PYRAZINAMIDE. [Concomitant]
     Active Substance: PYRAZINAMIDE
     Indication: TUBERCULOSIS
     Dosage: MOTHER?S DOSING
     Route: 063
     Dates: start: 20161019
  7. LINEZOLID. [Concomitant]
     Active Substance: LINEZOLID
     Indication: TUBERCULOSIS
     Route: 063
     Dates: start: 20170404
  8. SIRTURO [Suspect]
     Active Substance: BEDAQUILINE FUMARATE
     Indication: TUBERCULOSIS
     Dosage: MOTHER?S DOSING
     Route: 063
     Dates: start: 20161019
  9. ETHAMBUTOL [Concomitant]
     Active Substance: ETHAMBUTOL HYDROCHLORIDE
     Indication: TUBERCULOSIS
     Route: 063
     Dates: start: 20170520
  10. ETHAMBUTOL [Concomitant]
     Active Substance: ETHAMBUTOL HYDROCHLORIDE
     Indication: TUBERCULOSIS
     Dosage: MOTHER?S DOSING
     Route: 063
     Dates: start: 20161019, end: 20170520
  11. VITAMIN B6 [Concomitant]
     Active Substance: PYRIDOXINE HYDROCHLORIDE
     Indication: NEUROPATHY PERIPHERAL
     Route: 063
     Dates: start: 20161019

REACTIONS (6)
  - Pyrexia [Unknown]
  - Respiratory tract infection [Unknown]
  - Diarrhoea [Unknown]
  - Exposure during breast feeding [Unknown]
  - Aspiration [Fatal]
  - Gastroenteritis [Unknown]

NARRATIVE: CASE EVENT DATE: 201704
